FAERS Safety Report 4765993-1 (Version None)
Quarter: 2005Q3

REPORT INFORMATION
  Report Type: 
  Country: None (occurrence: None)
  Receive Date: 20050912
  Receipt Date: 20050804
  Transmission Date: 20060218
  Serious: Yes (Other)
  Sender: FDA-Public Use
  Company Number: US-GLAXOSMITHKLINE-A0568993A

PATIENT
  Sex: Female

DRUGS (2)
  1. PAXIL CR [Suspect]
     Route: 048
     Dates: end: 20050301
  2. PAXIL [Suspect]
     Route: 048
     Dates: start: 20050301, end: 20050701

REACTIONS (1)
  - CONVULSION [None]
